FAERS Safety Report 7357350-9 (Version None)
Quarter: 2011Q1

REPORT INFORMATION
  Report Type: 
  Country: None (occurrence: None)
  Receive Date: 20110308
  Receipt Date: 20110112
  Transmission Date: 20110831
  Serious: Yes (Other)
  Sender: FDA-Public Use
  Company Number: US-1185194

PATIENT
  Age: 63 Year
  Sex: Male
  Weight: 90.7194 kg

DRUGS (1)
  1. BSS [Suspect]
     Dosage: (INTROCULAR)
     Route: 031
     Dates: start: 20101220, end: 20101220

REACTIONS (1)
  - ENDOPHTHALMITIS [None]
